FAERS Safety Report 18121897 (Version 2)
Quarter: 2020Q3

REPORT INFORMATION
  Report Type: Other
  Country: BE (occurrence: BE)
  Receive Date: 20200806
  Receipt Date: 20200904
  Transmission Date: 20201103
  Serious: No
  Sender: FDA-Public Use
  Company Number: BE-ROCHE-2589518

PATIENT
  Age: 51 Year
  Sex: Female
  Weight: 64.2 kg

DRUGS (19)
  1. OCRELIZUMAB. [Suspect]
     Active Substance: OCRELIZUMAB
     Indication: PROGRESSIVE MULTIPLE SCLEROSIS
     Route: 042
  2. OXYNORM [Concomitant]
     Active Substance: OXYCODONE HYDROCHLORIDE
     Indication: TRIGEMINAL NEURALGIA
     Route: 048
     Dates: start: 201708
  3. DAFALGAN [Concomitant]
     Active Substance: ACETAMINOPHEN
     Indication: PAIN
     Route: 048
     Dates: start: 201709
  4. PARACETAMOL [Concomitant]
     Active Substance: ACETAMINOPHEN
     Dosage: START TIME: 10 45 ?END TIME: 11 15?FREQUENCY: ONCE BEFORE INFUSION
     Route: 042
     Dates: start: 20190716, end: 20190716
  5. CETIRIZINE [Concomitant]
     Active Substance: CETIRIZINE HYDROCHLORIDE
     Dosage: START TIME: 09 00?END TIME: UNKNOWN?FREQUENCY: ONCE BEFORE INFUSION
     Route: 048
     Dates: start: 20190702, end: 20190702
  6. OCRELIZUMAB. [Suspect]
     Active Substance: OCRELIZUMAB
     Dosage: START TIME: 11 45?END TIME: 14 45
     Route: 042
     Dates: start: 20190716, end: 20190716
  7. FAMPYRA [Concomitant]
     Active Substance: DALFAMPRIDINE
     Indication: GAIT DISTURBANCE
     Route: 048
     Dates: start: 201808
  8. RANITIDINE. [Concomitant]
     Active Substance: RANITIDINE
     Dosage: START TIME: 09 00?STOP TIME: UNKNOWN?FREQUENCY: ONCE BEFORE INFUSION
     Route: 048
     Dates: start: 20190702, end: 20190702
  9. D?CURE [Concomitant]
     Active Substance: CHOLECALCIFEROL
     Indication: VITAMIN D DEFICIENCY
     Dosage: DAILY DAOSE: 25000 AMPULE
     Route: 048
     Dates: start: 201709
  10. SOLU?MEDROL [Concomitant]
     Active Substance: METHYLPREDNISOLONE SODIUM SUCCINATE
     Dosage: START TIME: 10 15?END TIME: 10 45?FREQUENCY: ONCE BEFORE INFUSION
     Route: 042
     Dates: start: 20190716, end: 20190716
  11. PARACETAMOL [Concomitant]
     Active Substance: ACETAMINOPHEN
     Dosage: START TIME: 10 30?END TIME: 11 00?FREQUENCY: ONCE BEFORE INFUSION
     Route: 042
     Dates: start: 20190702, end: 20190702
  12. RANITIDINE. [Concomitant]
     Active Substance: RANITIDINE
     Dosage: START TIME: 09 00?END TIME: 09 00?FREQUENCY: ONCE BEFORE INFUSION
     Route: 048
     Dates: start: 20190716, end: 20190716
  13. SOLU?MEDROL [Concomitant]
     Active Substance: METHYLPREDNISOLONE SODIUM SUCCINATE
     Dosage: START TIME: 10 00?END TIME: 10 30?FREQUENCY: ONCE BEFORE INFUSION
     Route: 042
     Dates: start: 20190702, end: 20190702
  14. MOVICOL [Concomitant]
     Active Substance: POLYETHYLENE GLYCOL 3350\POTASSIUM CHLORIDE\SODIUM BICARBONATE\SODIUM CHLORIDE
     Indication: CONSTIPATION
     Route: 048
     Dates: start: 201709
  15. LIORESAL [Concomitant]
     Active Substance: BACLOFEN
     Indication: MUSCLE SPASTICITY
     Route: 048
     Dates: start: 201708
  16. RENNIE (BELGIUM) [Concomitant]
     Indication: NAUSEA
     Route: 048
     Dates: start: 201709
  17. HYLO GEL [Concomitant]
     Indication: DRY EYE
     Route: 047
     Dates: start: 201709
  18. OCRELIZUMAB. [Suspect]
     Active Substance: OCRELIZUMAB
     Dosage: START TIME: 12 10?END TIME: 15 15
     Route: 042
     Dates: start: 20190702, end: 20190702
  19. CETIRIZINE [Concomitant]
     Active Substance: CETIRIZINE HYDROCHLORIDE
     Dosage: START TIME: 10 15?END TIME: 10 15? FREQUENCY: ONCE BEFORE INFUSION
     Route: 048
     Dates: start: 20190716, end: 20190716

REACTIONS (1)
  - Leukopenia [Not Recovered/Not Resolved]

NARRATIVE: CASE EVENT DATE: 202001
